FAERS Safety Report 8133969-2 (Version None)
Quarter: 2012Q1

REPORT INFORMATION
  Report Type: 
  Country: None (occurrence: None)
  Receive Date: 20120213
  Receipt Date: 20120208
  Transmission Date: 20120608
  Serious: Yes (Other)
  Sender: FDA-Public Use
  Company Number: GR-AMGEN-GRCSP2011062351

PATIENT
  Age: 57 Year
  Sex: Male
  Weight: 79.5 kg

DRUGS (4)
  1. ARANESP [Suspect]
     Indication: ANAEMIA
     Dosage: 150 UNK, QWK
     Route: 058
     Dates: start: 20070101, end: 20080601
  2. ARANESP [Suspect]
     Dosage: 140 UNK, QWK
     Route: 058
     Dates: start: 20110501, end: 20111109
  3. ARANESP [Suspect]
     Dosage: 140 UNK, QWK
     Route: 042
     Dates: start: 20080601, end: 20110430
  4. ISONIAZID [Suspect]
     Indication: ANTIBIOTIC PROPHYLAXIS
     Dosage: 100 MG, UNK
     Dates: start: 20110723, end: 20110723

REACTIONS (2)
  - DRUG INEFFECTIVE [None]
  - APLASIA PURE RED CELL [None]
